FAERS Safety Report 5735891-5 (Version None)
Quarter: 2008Q2

REPORT INFORMATION
  Report Type: 
  Country: None (occurrence: None)
  Receive Date: 20080509
  Receipt Date: 20080509
  Transmission Date: 20081010
  Serious: Yes (Life-Threatening, Disabling, Other)
  Sender: FDA-Public Use
  Company Number: None

PATIENT
  Age: 47 Year
  Sex: Male
  Weight: 99.7913 kg

DRUGS (1)
  1. CHANTIX [Suspect]
     Indication: SMOKING CESSATION THERAPY
     Dosage: DON'T KNOW DAILY PO
     Route: 048
     Dates: start: 20070815, end: 20070901

REACTIONS (5)
  - ABNORMAL DREAMS [None]
  - DEPRESSION [None]
  - NIGHT SWEATS [None]
  - PERSONALITY CHANGE [None]
  - SUICIDAL IDEATION [None]
